FAERS Safety Report 6162453-0 (Version None)
Quarter: 2009Q2

REPORT INFORMATION
  Report Type: 
  Country: None (occurrence: None)
  Receive Date: 20090421
  Receipt Date: 20090414
  Transmission Date: 20091009
  Serious: Yes (Other)
  Sender: FDA-Public Use
  Company Number: PHHY2009GB01986

PATIENT
  Sex: Female

DRUGS (1)
  1. GLEEVEC [Suspect]
     Indication: CHRONIC MYELOID LEUKAEMIA
     Dosage: 200 MG, BID
     Route: 048
     Dates: start: 20041123, end: 20081027

REACTIONS (4)
  - EYE SWELLING [None]
  - GENE MUTATION IDENTIFICATION TEST POSITIVE [None]
  - RETINAL ARTERY OCCLUSION [None]
  - THERAPEUTIC RESPONSE DECREASED [None]
